FAERS Safety Report 13315153 (Version 1)
Quarter: 2017Q1

REPORT INFORMATION
  Report Type: Report from Study
  Country: None (occurrence: EC)
  Receive Date: 20170309
  Receipt Date: 20170309
  Transmission Date: 20170428
  Serious: Yes (Other)
  Sender: FDA-Public Use
  Company Number: EC-ABBVIE-17P-047-1896670-00

PATIENT
  Age: 50 Year
  Sex: Male

DRUGS (1)
  1. HUMIRA [Suspect]
     Active Substance: ADALIMUMAB
     Indication: PSORIATIC ARTHROPATHY
     Route: 058
     Dates: start: 201412, end: 20170122

REACTIONS (1)
  - Umbilical hernia repair [Recovering/Resolving]

NARRATIVE: CASE EVENT DATE: 20170301
